FAERS Safety Report 19854072 (Version 1)
Quarter: 2021Q3

REPORT INFORMATION
  Report Type: Spontaneous
  Country: NL (occurrence: NL)
  Receive Date: 20210920
  Receipt Date: 20210920
  Transmission Date: 20211014
  Serious: Yes (Death)
  Sender: FDA-Public Use
  Company Number: NL-TERSERA THERAPEUTICS LLC-2021TRS004316

PATIENT

DRUGS (1)
  1. ZOLADEX [Suspect]
     Active Substance: GOSERELIN ACETATE
     Indication: APHTHOUS ULCER
     Dosage: 10.8 MILLIGRAM, EVERY THREE MONTHS
     Route: 058
     Dates: start: 20200318, end: 20210815

REACTIONS (1)
  - Death [Fatal]

NARRATIVE: CASE EVENT DATE: 20210815
